FAERS Safety Report 21535626 (Version 3)
Quarter: 2023Q1

REPORT INFORMATION
  Report Type: Report from Study
  Country: CA (occurrence: CA)
  Receive Date: 20221101
  Receipt Date: 20230120
  Transmission Date: 20230418
  Serious: Yes (Other)
  Sender: FDA-Public Use
  Company Number: CA-ABBVIE-22K-028-4381599-00

PATIENT
  Sex: Female
  Weight: 44 kg

DRUGS (2)
  1. RINVOQ [Suspect]
     Active Substance: UPADACITINIB
     Indication: Rheumatoid arthritis
     Route: 048
     Dates: start: 20210422
  2. RINVOQ [Suspect]
     Active Substance: UPADACITINIB
     Indication: Rheumatoid arthritis
     Route: 048

REACTIONS (10)
  - Seizure [Not Recovered/Not Resolved]
  - Chest discomfort [Unknown]
  - Weight decreased [Not Recovered/Not Resolved]
  - Pneumonia [Unknown]
  - Dizziness [Unknown]
  - Pain [Unknown]
  - Tremor [Unknown]
  - Joint range of motion decreased [Unknown]
  - Sitting disability [Unknown]
  - Bursitis [Unknown]

NARRATIVE: CASE EVENT DATE: 20220101
